FAERS Safety Report 10158529 (Version 1)
Quarter: 2014Q2

REPORT INFORMATION
  Report Type: Spontaneous
  Country: AU (occurrence: AU)
  Receive Date: 20140507
  Receipt Date: 20140507
  Transmission Date: 20141212
  Serious: Yes (Other)
  Sender: FDA-Public Use
  Company Number: PHHY2014AU054703

PATIENT
  Age: 57 Year
  Sex: Male

DRUGS (9)
  1. TEGRETOL [Suspect]
     Indication: TRIGEMINAL NEURALGIA
     Dosage: 200 MG, UNK
     Route: 048
     Dates: start: 20040917
  2. TEGRETOL [Suspect]
     Dosage: 900 MG, UNK
     Route: 048
     Dates: end: 20041123
  3. LYRICA [Concomitant]
     Dosage: 900 MG, UNK
  4. BACLOFEN [Concomitant]
     Dosage: 900 MG, UNK
  5. LIPITOR [Concomitant]
     Dosage: 80 MG, UNK
  6. OROXINE [Concomitant]
     Dosage: 100 UG, UNK
  7. ASPIRIN [Concomitant]
     Dosage: 100 MG, UNK
  8. OXYNORM [Concomitant]
     Dosage: 5 MG, PRN
  9. TEMGESIC [Concomitant]
     Dosage: 0.2 MG, PRN

REACTIONS (16)
  - Glaucoma [Unknown]
  - Prostate cancer [Unknown]
  - Intracranial aneurysm [Unknown]
  - Pneumonia [Unknown]
  - Gastrooesophageal reflux disease [Unknown]
  - Sleep apnoea syndrome [Unknown]
  - Vitamin D deficiency [Unknown]
  - Chest pain [Unknown]
  - Iron deficiency [Unknown]
  - Cluster headache [Unknown]
  - Rotator cuff syndrome [Unknown]
  - Periarthritis [Unknown]
  - Vitamin B12 deficiency [Unknown]
  - Electrocardiogram PR prolongation [Unknown]
  - Drug hypersensitivity [Recovered/Resolved]
  - Folate deficiency [Unknown]
